FAERS Safety Report 23259449 (Version 1)
Quarter: 2023Q4

REPORT INFORMATION
  Report Type: Spontaneous
  Country: IT (occurrence: IT)
  Receive Date: 20231204
  Receipt Date: 20231204
  Transmission Date: 20240109
  Serious: Yes (Hospitalization)
  Sender: FDA-Public Use
  Company Number: None

PATIENT
  Age: 80 Year
  Sex: Female

DRUGS (3)
  1. ALENDRONATE SODIUM [Suspect]
     Active Substance: ALENDRONATE SODIUM
     Dosage: 1 TABLET 70MG/DAY (PER DAY NOT ONE PER WEEK)
     Route: 048
     Dates: start: 20231021, end: 20231026
  2. TACHIPIRINA [Concomitant]
     Active Substance: ACETAMINOPHEN
     Indication: Injury
     Dosage: 1 GR, 3 TIMES/DAY
     Route: 048
     Dates: start: 20231021, end: 20231026
  3. NALOXONE HYDROCHLORIDE\OXYCODONE HYDROCHLORIDE [Concomitant]
     Active Substance: NALOXONE HYDROCHLORIDE\OXYCODONE HYDROCHLORIDE
     Indication: Injury
     Dosage: 2.5 MG+5 MG, 2 TIMES PER DAY
     Route: 048
     Dates: start: 20231025, end: 20231026

REACTIONS (5)
  - Hepatotoxicity [Recovering/Resolving]
  - Alanine aminotransferase increased [Recovering/Resolving]
  - Overdose [Recovering/Resolving]
  - Aspartate aminotransferase increased [Recovering/Resolving]
  - Medication error [Recovering/Resolving]

NARRATIVE: CASE EVENT DATE: 20231021
